FAERS Safety Report 18621354 (Version 4)
Quarter: 2021Q1

REPORT INFORMATION
  Report Type: Report from Study
  Country: US (occurrence: US)
  Receive Date: 20201215
  Receipt Date: 20210111
  Transmission Date: 20210419
  Serious: Yes (Death, Life-Threatening, Hospitalization, Other)
  Sender: FDA-Public Use
  Company Number: US-GILEAD-2020-0495551

PATIENT
  Age: 44 Year
  Sex: Female
  Weight: 98 kg

DRUGS (105)
  1. REMDESIVIR. [Suspect]
     Active Substance: REMDESIVIR
     Indication: COVID-19 PNEUMONIA
     Dosage: DATE OF MOST RECENT DOSE (VOLUME 250 ML) OF REMDESIVIR PRIOR TO AE/SAE ONSET: 10/SEP/2020.AT 20:53
     Route: 042
     Dates: start: 20200910, end: 202009
  2. TOCILIZUMAB. [Suspect]
     Active Substance: TOCILIZUMAB
     Indication: COVID-19 PNEUMONIA
     Dosage: 100 ML
     Route: 042
     Dates: start: 20200910
  3. TOCILIZUMAB. [Suspect]
     Active Substance: TOCILIZUMAB
     Dosage: 100 ML (MOST RECENT DOSE PRIOR TO EVENT)
     Route: 042
     Dates: start: 20200911
  4. SOLU?MEDROL [Concomitant]
     Active Substance: METHYLPREDNISOLONE SODIUM SUCCINATE
     Indication: COVID-19
     Dosage: 10 MG, QD
     Dates: start: 20200910, end: 20200919
  5. ZOFRAN [Concomitant]
     Active Substance: ONDANSETRON HYDROCHLORIDE
     Indication: NAUSEA
     Dates: start: 20200910, end: 20200911
  6. PROTONIX [Concomitant]
     Active Substance: PANTOPRAZOLE SODIUM
     Indication: GASTROOESOPHAGEAL REFLUX DISEASE
     Dates: start: 20200910, end: 20200924
  7. ACETAMINOPHEN. [Concomitant]
     Active Substance: ACETAMINOPHEN
     Indication: PAIN
     Dates: start: 20200910, end: 20200921
  8. DEXTROSE IN WATER [Concomitant]
     Active Substance: DEXTROSE\WATER
     Indication: HYPOGLYCAEMIA
     Dates: start: 20200910, end: 20200924
  9. GLUCAGON. [Concomitant]
     Active Substance: GLUCAGON
     Indication: HYPOGLYCAEMIA
     Dates: start: 20200910, end: 20200914
  10. HUMALOG [Concomitant]
     Active Substance: INSULIN LISPRO
     Indication: DIABETES MELLITUS
     Dosage: 10 IU
     Dates: start: 20200910, end: 20200924
  11. CISATRACURIUM. [Concomitant]
     Active Substance: CISATRACURIUM
     Dosage: 1.5 OTHER
     Dates: start: 20200912, end: 20200912
  12. DOBUTAMINE [Concomitant]
     Active Substance: DOBUTAMINE HYDROCHLORIDE
     Indication: BLOOD PRESSURE MEASUREMENT
     Dates: start: 20200911, end: 20200911
  13. VANCOMYCIN [Concomitant]
     Active Substance: VANCOMYCIN
     Dosage: 1500 MG, QD
     Dates: start: 20200923, end: 20200923
  14. CALCIUM GLUCONATE;SODIUM CHLORIDE [Concomitant]
     Indication: BLOOD CALCIUM DECREASED
     Dates: start: 20200912, end: 20200913
  15. OXYGEN. [Concomitant]
     Active Substance: OXYGEN
     Dosage: 80 L/MIN
     Route: 055
     Dates: start: 20200910
  16. OXYGEN. [Concomitant]
     Active Substance: OXYGEN
     Dosage: 40 %
     Route: 007
     Dates: start: 20200913
  17. OXYGEN. [Concomitant]
     Active Substance: OXYGEN
     Dosage: 40 %
     Route: 007
     Dates: start: 20200912
  18. ACETAMINOPHEN. [Concomitant]
     Active Substance: ACETAMINOPHEN
     Indication: COVID-19
  19. CISATRACURIUM. [Concomitant]
     Active Substance: CISATRACURIUM
     Dosage: 3 OTHER
     Dates: start: 20200921, end: 20200924
  20. DEXMEDETOMIDINE. [Concomitant]
     Active Substance: DEXMEDETOMIDINE
     Dosage: 1 MG, QD
     Dates: start: 20200911, end: 20200911
  21. NOREPINEPHRINE. [Concomitant]
     Active Substance: NOREPINEPHRINE
     Indication: BLOOD PRESSURE MEASUREMENT
     Dates: start: 20200912, end: 20200924
  22. PIPERACILLIN AND TAZOBACTAM [Concomitant]
     Active Substance: PIPERACILLIN SODIUM\TAZOBACTAM SODIUM
     Indication: COVID-19
     Dates: start: 20200912, end: 20200919
  23. SODIUM CHLORIDE. [Concomitant]
     Active Substance: SODIUM CHLORIDE
     Dosage: 75 ML
     Dates: start: 20200912, end: 20200912
  24. WHITE PETROLATUM [Concomitant]
     Active Substance: PETROLATUM
     Indication: COVID-19
     Dosage: MINERAL OIL
     Dates: start: 20200911, end: 20200914
  25. BISACODYL. [Concomitant]
     Active Substance: BISACODYL
     Indication: CONSTIPATION
     Dates: start: 20200917, end: 20200918
  26. IPRATROPIUM BROMIDE AND ALBUTEROL SULFATE [Concomitant]
     Active Substance: ALBUTEROL SULFATE\IPRATROPIUM BROMIDE
     Dosage: 3 ML, QD
     Dates: start: 20200921, end: 20200924
  27. OXYGEN. [Concomitant]
     Active Substance: OXYGEN
     Dosage: UNK
     Route: 007
     Dates: start: 20200912
  28. OXYGEN. [Concomitant]
     Active Substance: OXYGEN
     Dosage: 60 %
     Route: 007
     Dates: start: 20200916
  29. OXYGEN. [Concomitant]
     Active Substance: OXYGEN
     Dosage: 100 %
     Route: 007
     Dates: start: 20200923
  30. OXYGEN. [Concomitant]
     Active Substance: OXYGEN
     Dosage: 50 %
     Route: 007
     Dates: start: 20200917
  31. LOVENOX [Concomitant]
     Active Substance: ENOXAPARIN SODIUM
     Indication: COVID-19
     Dosage: 40 MG
     Dates: start: 20200910, end: 20200911
  32. INSULIN HUMAN [Concomitant]
     Active Substance: INSULIN HUMAN
     Indication: DIABETES MELLITUS
     Dosage: 1 IU
     Dates: start: 20200910, end: 20200923
  33. INSULIN HUMAN [Concomitant]
     Active Substance: INSULIN HUMAN
     Dosage: 10 IU
     Dates: start: 20200909, end: 20200909
  34. FAMOTIDINE. [Concomitant]
     Active Substance: FAMOTIDINE
     Indication: GASTROOESOPHAGEAL REFLUX DISEASE
     Dates: start: 20200828, end: 20200909
  35. ALTEPLASE. [Concomitant]
     Active Substance: ALTEPLASE
     Indication: COVID-19
     Route: 042
     Dates: start: 20200911, end: 20200911
  36. EPINEPHRINE. [Concomitant]
     Active Substance: EPINEPHRINE
     Indication: COVID-19
  37. LORAZEPAM. [Concomitant]
     Active Substance: LORAZEPAM
     Indication: ANXIETY
     Dates: start: 20200911, end: 20200911
  38. MIDAZOLAM. [Concomitant]
     Active Substance: MIDAZOLAM
     Indication: COVID-19
     Dates: start: 20200911, end: 20200913
  39. SODIUM BICARBONATE. [Concomitant]
     Active Substance: SODIUM BICARBONATE
     Indication: GASTROOESOPHAGEAL REFLUX DISEASE
     Dates: start: 20200911, end: 20200911
  40. CALCIUM GLUCONATE. [Concomitant]
     Active Substance: CALCIUM GLUCONATE
     Indication: BLOOD CALCIUM DECREASED
     Dates: start: 20200913, end: 20200924
  41. POLYETHYLENE GLYCOL [MACROGOL] [Concomitant]
     Active Substance: POLYETHYLENE GLYCOLS
     Indication: CONSTIPATION
     Dates: start: 20200915, end: 20200917
  42. OXYGEN. [Concomitant]
     Active Substance: OXYGEN
     Dosage: 40 %
     Route: 007
     Dates: start: 20200916
  43. OXYGEN. [Concomitant]
     Active Substance: OXYGEN
     Dosage: 30 %
     Route: 007
     Dates: start: 20200913
  44. HYPROMELLOSE [Concomitant]
     Active Substance: HYPROMELLOSES
     Indication: COVID-19
  45. HEPARIN [Concomitant]
     Active Substance: HEPARIN SODIUM
     Dosage: 1500 IU, QD
     Dates: start: 20200912, end: 20200912
  46. SODIUM CHLORIDE. [Concomitant]
     Active Substance: SODIUM CHLORIDE
     Dosage: 125 ML, QD
     Dates: start: 20200910, end: 20200910
  47. VANCOMYCIN [Concomitant]
     Active Substance: VANCOMYCIN
     Indication: COVID-19
     Dosage: UNK
     Dates: start: 20200911, end: 20200911
  48. VASOPRESSIN. [Concomitant]
     Active Substance: VASOPRESSIN
     Indication: SHOCK
     Dosage: 2.4 IU, QD
     Dates: start: 20200911, end: 20200912
  49. DOCUSATE [Concomitant]
     Active Substance: DOCUSATE
     Indication: COVID-19
     Dates: start: 20200915, end: 20200924
  50. OXYGEN. [Concomitant]
     Active Substance: OXYGEN
     Dosage: 100 L/MIN
     Route: 055
     Dates: start: 20200910
  51. OXYGEN. [Concomitant]
     Active Substance: OXYGEN
     Dosage: 60 %
     Route: 007
     Dates: start: 20200911
  52. OXYGEN. [Concomitant]
     Active Substance: OXYGEN
     Dosage: 50 %
     Route: 007
     Dates: start: 20200922
  53. SOLU?MEDROL [Concomitant]
     Active Substance: METHYLPREDNISOLONE SODIUM SUCCINATE
     Dosage: 60 MG, QD
     Dates: start: 20200921, end: 20200923
  54. LANTUS [Concomitant]
     Active Substance: INSULIN GLARGINE
     Indication: DIABETES MELLITUS
     Dosage: 50 IU, QD
     Dates: start: 20200912, end: 20200924
  55. LACTATED RINGERS SOLUTION [Concomitant]
     Active Substance: CALCIUM CHLORIDE\POTASSIUM CHLORIDE\SODIUM CHLORIDE\SODIUM LACTATE
     Indication: COVID-19
     Dosage: UNK
     Dates: start: 20200909, end: 20200909
  56. SODIUM CHLORIDE. [Concomitant]
     Active Substance: SODIUM CHLORIDE
     Indication: COVID-19
     Dates: start: 20200909, end: 20200910
  57. VASOPRESSIN. [Concomitant]
     Active Substance: VASOPRESSIN
     Indication: COVID-19
  58. SENNOSIDES. [Concomitant]
     Active Substance: SENNOSIDES
     Indication: COVID-19
     Dates: start: 20200916, end: 20200924
  59. OXYGEN. [Concomitant]
     Active Substance: OXYGEN
     Dosage: 50 %
     Route: 007
     Dates: start: 20200915
  60. OXYGEN. [Concomitant]
     Active Substance: OXYGEN
     Dosage: 50 %
     Route: 007
     Dates: start: 20200914
  61. OXYGEN. [Concomitant]
     Active Substance: OXYGEN
     Dosage: 60 %
     Route: 007
     Dates: start: 20200919
  62. OXYGEN. [Concomitant]
     Active Substance: OXYGEN
     Dosage: 60 %
     Route: 007
     Dates: start: 20200921
  63. OXYGEN. [Concomitant]
     Active Substance: OXYGEN
     Dosage: 80 L/MIN
     Route: 055
     Dates: start: 20200911
  64. HYPROMELLOSE [Concomitant]
     Active Substance: HYPROMELLOSES
     Indication: DRY EYE
     Dates: start: 20200911, end: 20200924
  65. CHLORHEXIDINE GLUCONATE. [Concomitant]
     Active Substance: CHLORHEXIDINE GLUCONATE
     Indication: CENTRAL VENOUS CATHETERISATION
     Dates: start: 20200911, end: 20200924
  66. CISATRACURIUM. [Concomitant]
     Active Substance: CISATRACURIUM
     Indication: COVID-19
     Dosage: 2.5 OTHER
     Dates: start: 20200911, end: 20200912
  67. CISATRACURIUM. [Concomitant]
     Active Substance: CISATRACURIUM
     Dosage: 2 MG, QD
     Dates: start: 20200912, end: 20200912
  68. DEXMEDETOMIDINE. [Concomitant]
     Active Substance: DEXMEDETOMIDINE
     Indication: COVID-19
     Dosage: 1.5 MG, QD
     Dates: start: 20200911, end: 20200911
  69. DOBUTAMINE [Concomitant]
     Active Substance: DOBUTAMINE HYDROCHLORIDE
     Indication: COVID-19
  70. HALOPERIDOL LACTATE. [Concomitant]
     Active Substance: HALOPERIDOL LACTATE
     Indication: COVID-19
     Dates: start: 20200911, end: 20200911
  71. LACTATED RINGERS SOLUTION [Concomitant]
     Active Substance: CALCIUM CHLORIDE\POTASSIUM CHLORIDE\SODIUM CHLORIDE\SODIUM LACTATE
     Dosage: 500 ML, QD
     Dates: start: 20200923, end: 20200924
  72. PROPOFOL. [Concomitant]
     Active Substance: PROPOFOL
     Indication: COVID-19
     Dosage: 10 MG
     Dates: start: 20200911, end: 20200913
  73. OXYGEN. [Concomitant]
     Active Substance: OXYGEN
     Dosage: 50 %
     Route: 007
     Dates: start: 20200918
  74. OXYGEN. [Concomitant]
     Active Substance: OXYGEN
     Dosage: 100 %
     Route: 007
     Dates: start: 20200924
  75. OXYGEN. [Concomitant]
     Active Substance: OXYGEN
     Dosage: 100 %
     Route: 007
     Dates: start: 20200914
  76. LOVENOX [Concomitant]
     Active Substance: ENOXAPARIN SODIUM
     Indication: THROMBOSIS PROPHYLAXIS
     Dosage: 60 MG, QD
     Dates: start: 20200911, end: 20200911
  77. METHYLPREDNISOLONE. [Concomitant]
     Active Substance: METHYLPREDNISOLONE
     Indication: PRURITUS
     Dates: start: 20200910, end: 20200910
  78. FENTANYL. [Concomitant]
     Active Substance: FENTANYL
     Indication: PAIN
     Dates: start: 20200911, end: 20200924
  79. FENTANYL. [Concomitant]
     Active Substance: FENTANYL
     Indication: COVID-19
     Dosage: 50 OTHER
     Dates: start: 20200911, end: 20200911
  80. HEPARIN [Concomitant]
     Active Substance: HEPARIN SODIUM
     Indication: COVID-19
     Dosage: 1800 IU, QD
     Dates: start: 20200912, end: 20200923
  81. LORAZEPAM. [Concomitant]
     Active Substance: LORAZEPAM
     Indication: COVID-19
  82. SOLU?MEDROL [Concomitant]
     Active Substance: METHYLPREDNISOLONE SODIUM SUCCINATE
  83. OXYGEN. [Concomitant]
     Active Substance: OXYGEN
     Dosage: 40 %
     Route: 007
     Dates: start: 20200919
  84. OXYGEN. [Concomitant]
     Active Substance: OXYGEN
     Dosage: 50 %
     Route: 007
     Dates: start: 20200922
  85. OXYGEN. [Concomitant]
     Active Substance: OXYGEN
     Dosage: 60 %
     Route: 007
     Dates: start: 20200919
  86. OXYGEN. [Concomitant]
     Active Substance: OXYGEN
     Dosage: 60 %
     Route: 007
     Dates: start: 20200911
  87. OXYGEN. [Concomitant]
     Active Substance: OXYGEN
     Dosage: 50 %
     Route: 007
     Dates: start: 20200918
  88. OXYGEN. [Concomitant]
     Active Substance: OXYGEN
     Dosage: 6 L/MIN
     Route: 055
     Dates: start: 20200910
  89. OMEPRAZOLE. [Concomitant]
     Active Substance: OMEPRAZOLE
     Indication: GASTROOESOPHAGEAL REFLUX DISEASE
     Dates: start: 20200828, end: 20200909
  90. DIPHENHYDRAMINE. [Concomitant]
     Active Substance: DIPHENHYDRAMINE
     Indication: COVID-19
     Dates: start: 20200910, end: 20200910
  91. LANTUS [Concomitant]
     Active Substance: INSULIN GLARGINE
     Dosage: 30 IU, QD
     Dates: start: 20200911, end: 20200912
  92. CISATRACURIUM. [Concomitant]
     Active Substance: CISATRACURIUM
     Indication: RESPIRATORY DISTRESS
     Dosage: UNK
     Dates: start: 20200911, end: 20200911
  93. CLONAZEPAM. [Concomitant]
     Active Substance: CLONAZEPAM
     Indication: COVID-19
     Dosage: 0.5 MG, QD
     Dates: start: 20200912, end: 20200912
  94. DEXMEDETOMIDINE. [Concomitant]
     Active Substance: DEXMEDETOMIDINE
     Dosage: 0.4 MG, QD
     Dates: start: 20200911, end: 20200911
  95. EPINEPHRINE. [Concomitant]
     Active Substance: EPINEPHRINE
     Indication: ANAPHYLACTIC REACTION
     Dates: start: 20200911, end: 20200911
  96. NOREPINEPHRINE. [Concomitant]
     Active Substance: NOREPINEPHRINE
     Indication: COVID-19
  97. PROPOFOL. [Concomitant]
     Active Substance: PROPOFOL
     Dosage: UNK
     Dates: start: 20200917, end: 20200924
  98. VANCOMYCIN [Concomitant]
     Active Substance: VANCOMYCIN
     Dosage: 1000 MG, QD
     Dates: start: 20200912, end: 20200914
  99. SODIUM CITRATE. [Concomitant]
     Active Substance: SODIUM CITRATE
     Indication: DIALYSIS
     Dates: start: 20200913, end: 20200915
  100. ROCURONIUM [Concomitant]
     Active Substance: ROCURONIUM BROMIDE
     Indication: COVID-19
     Dates: start: 20200914, end: 20200914
  101. CEFEPIME [Concomitant]
     Active Substance: CEFEPIME HYDROCHLORIDE
     Indication: COVID-19
     Dates: start: 20200923, end: 20200924
  102. OXYGEN. [Concomitant]
     Active Substance: OXYGEN
     Dosage: 50 %
     Route: 007
     Dates: start: 20200921
  103. OXYGEN. [Concomitant]
     Active Substance: OXYGEN
     Dosage: 60 %
     Route: 007
     Dates: start: 20200923
  104. OXYGEN. [Concomitant]
     Active Substance: OXYGEN
     Dosage: 60 %
     Route: 007
     Dates: start: 20200920
  105. OXYGEN. [Concomitant]
     Active Substance: OXYGEN
     Dosage: UNK
     Route: 007
     Dates: start: 20200920

REACTIONS (3)
  - Acute hepatic failure [Recovering/Resolving]
  - COVID-19 pneumonia [Fatal]
  - Acute kidney injury [Recovering/Resolving]

NARRATIVE: CASE EVENT DATE: 20200911
